FAERS Safety Report 11629338 (Version 1)
Quarter: 2015Q4

REPORT INFORMATION
  Report Type: Spontaneous
  Country: US (occurrence: None)
  Receive Date: 20151013
  Receipt Date: 20151013
  Transmission Date: 20160304
  Serious: Yes (Other)
  Sender: FDA-Public Use
  Company Number: None

PATIENT
  Age: 52 Year
  Sex: Female
  Weight: 68.04 kg

DRUGS (1)
  1. LEVOFLOXACIN 500MG ZYGENRICS [Suspect]
     Active Substance: LEVOFLOXACIN
     Indication: INFECTION
     Dosage: 1X 500MG
     Route: 048
     Dates: start: 20151008, end: 20151009

REACTIONS (4)
  - Muscle spasms [None]
  - Insomnia [None]
  - Agitation [None]
  - Tendonitis [None]

NARRATIVE: CASE EVENT DATE: 20151008
